FAERS Safety Report 6625897-6 (Version None)
Quarter: 2010Q1

REPORT INFORMATION
  Report Type: 
  Country: None (occurrence: None)
  Receive Date: 20100310
  Receipt Date: 20100308
  Transmission Date: 20100710
  Serious: Yes (Hospitalization)
  Sender: FDA-Public Use
  Company Number: GXKR2010DE02657

PATIENT
  Age: 68 Year
  Sex: Female
  Weight: 101 kg

DRUGS (9)
  1. METFORMIN 1A PHARMA (NGX) [Suspect]
     Indication: TYPE 2 DIABETES MELLITUS
     Dosage: 850 MG, BID
     Route: 048
     Dates: start: 20050101, end: 20100104
  2. ENALAPRIL MALEATE AND HYDROCHLOROTHIAZIDE [Suspect]
     Indication: HYPERTENSION
     Dosage: 1 DF, QD
     Route: 048
     Dates: start: 20001101, end: 20100104
  3. FURORESE [Suspect]
     Indication: HYPERTENSION
     Dosage: 20 MG, TID
     Route: 048
     Dates: start: 20020101
  4. JENAPURINOL [Concomitant]
  5. IRON [Concomitant]
  6. FOLIC ACID [Concomitant]
  7. DOXAZOSIN MESYLATE [Concomitant]
  8. ACETYLSALICYLIC ACID [Concomitant]
  9. BISOPROLOL FUMARATE [Concomitant]

REACTIONS (2)
  - LACTIC ACIDOSIS [None]
  - RENAL FAILURE ACUTE [None]
